FAERS Safety Report 4372337-6 (Version None)
Quarter: 2004Q2

REPORT INFORMATION
  Report Type: 
  Country: None (occurrence: None)
  Receive Date: 20040526
  Receipt Date: 20040513
  Transmission Date: 20050107
  Serious: Yes (Other)
  Sender: FDA-Public Use
  Company Number: 2004213988IT

PATIENT
  Age: 50 Year
  Sex: Female

DRUGS (3)
  1. CISPLATIN [Suspect]
     Indication: BREAST CANCER
     Dosage: 50 MG/M2, Q3WKS/3 CYCLES GIVEN, IV
     Route: 042
     Dates: start: 20020701
  2. FLUOROURACIL [Suspect]
     Indication: BREAST CANCER
     Dosage: 200 MG/M2, Q3WKS/3 CYCLES GIVEN, IV
     Route: 042
     Dates: start: 20020701
  3. EPIRUBICINA CE (EPIRUBICIN HYDROCHLORIDE) SOLUTION, STERILE [Suspect]
     Indication: BREAST CANCER
     Dosage: 50 MG/M2, Q3WKS/3 CYCLES GIVEN, IV
     Route: 042
     Dates: start: 20020701

REACTIONS (5)
  - ARTHRALGIA [None]
  - DIAPHRAGMATIC PARALYSIS [None]
  - DYSPNOEA [None]
  - NERVE INJURY [None]
  - PERIPHERAL NERVE INJURY [None]
